FAERS Safety Report 16010239 (Version 1)
Quarter: 2019Q1

REPORT INFORMATION
  Report Type: Report from Study
  Country: BR (occurrence: BR)
  Receive Date: 20190225
  Receipt Date: 20190225
  Transmission Date: 20190418
  Serious: Yes (Hospitalization, Other)
  Sender: FDA-Public Use
  Company Number: BR-TEVA-743959ROM

PATIENT
  Age: 42 Year
  Sex: Female

DRUGS (5)
  1. CLINDAMICINE [Suspect]
     Active Substance: CLINDAMYCIN
     Indication: HYPERSENSITIVITY
     Route: 065
  2. CEFADROXIL. [Suspect]
     Active Substance: CEFADROXIL
     Indication: HYPERSENSITIVITY
     Route: 065
     Dates: end: 2017
  3. ROCEFIN [Suspect]
     Active Substance: CEFTRIAXONE SODIUM
     Indication: HYPERSENSITIVITY
     Route: 065
  4. COPAXONE [Suspect]
     Active Substance: GLATIRAMER ACETATE
     Indication: MULTIPLE SCLEROSIS
     Dosage: 20 MILLIGRAM/MILLILITERS DAILY;
     Route: 065
     Dates: start: 20131215
  5. KEFAZOL [Suspect]
     Active Substance: CEFAZOLIN SODIUM
     Indication: HYPERSENSITIVITY
     Route: 065

REACTIONS (12)
  - Haematochezia [Unknown]
  - Injection site haemorrhage [None]
  - Frequent bowel movements [None]
  - Injection site induration [None]
  - Wrong technique in product usage process [None]
  - Functional gastrointestinal disorder [Unknown]
  - Injection site pain [None]
  - Drug hypersensitivity [Recovering/Resolving]
  - Clostridium difficile colitis [Recovering/Resolving]
  - Injection site swelling [None]
  - Injection site erythema [None]
  - Gait disturbance [None]

NARRATIVE: CASE EVENT DATE: 2017
